FAERS Safety Report 9455372 (Version 1)
Quarter: 2013Q3

REPORT INFORMATION
  Report Type: Report from Study
  Country: BR (occurrence: BR)
  Receive Date: 20130813
  Receipt Date: 20130813
  Transmission Date: 20140515
  Serious: Yes (Other)
  Sender: FDA-Public Use
  Company Number: PHHY2013BR085364

PATIENT
  Age: 56 Year
  Sex: Female
  Weight: 65 kg

DRUGS (4)
  1. DIOVAN AMLO FIX [Suspect]
     Indication: HYPERTENSION
     Dosage: 1 TABLET (160/10 MG), DAILY
     Route: 048
  2. SANDOSTATIN LAR [Suspect]
     Dosage: 20 MG, QMO
     Route: 030
  3. SANDOSTATIN LAR [Suspect]
     Dosage: 30 MG, QMO
     Route: 030
  4. INTERFERON [Suspect]
     Dosage: UNK UKN, UNK
     Dates: end: 201207

REACTIONS (6)
  - Weight increased [Not Recovered/Not Resolved]
  - Oedema peripheral [Recovered/Resolved]
  - Metastasis [Unknown]
  - Cholelithiasis [Unknown]
  - Hypothyroidism [Unknown]
  - Syncope [Recovered/Resolved]
